FAERS Safety Report 25683020 (Version 1)
Quarter: 2025Q3

REPORT INFORMATION
  Report Type: Spontaneous
  Country: US (occurrence: US)
  Receive Date: 20250814
  Receipt Date: 20250814
  Transmission Date: 20251021
  Serious: Yes (Other)
  Sender: ETHYPHARM
  Company Number: US-ETHYPHARM-2025002178

PATIENT
  Age: 68 Year
  Sex: Male

DRUGS (3)
  1. BUPRENORPHINE\NALOXONE [Suspect]
     Active Substance: BUPRENORPHINE\NALOXONE
     Indication: Back pain
  2. GABAPENTIN [Concomitant]
     Active Substance: GABAPENTIN
     Indication: Product used for unknown indication
  3. TRAZODONE [Concomitant]
     Active Substance: TRAZODONE HYDROCHLORIDE
     Indication: Product used for unknown indication

REACTIONS (6)
  - Somnolence [Unknown]
  - Respiratory disorder [Unknown]
  - Hypoventilation [Unknown]
  - Hypoxia [Unknown]
  - Hypopnoea [Unknown]
  - Off label use [Unknown]
